FAERS Safety Report 22612019 (Version 2)
Quarter: 2023Q2

REPORT INFORMATION
  Report Type: Spontaneous
  Country: US (occurrence: US)
  Receive Date: 20230617
  Receipt Date: 20230626
  Transmission Date: 20230721
  Serious: No
  Sender: FDA-Public Use
  Company Number: US-ABBVIE-5294521

PATIENT
  Sex: Female

DRUGS (4)
  1. BOTOX COSMETIC [Suspect]
     Active Substance: ONABOTULINUMTOXINA
     Indication: Skin wrinkling
     Dosage: 2 UNITS TO L DAO
     Route: 065
     Dates: start: 20221001, end: 20221001
  2. BOTOX COSMETIC [Suspect]
     Active Substance: ONABOTULINUMTOXINA
     Indication: Skin wrinkling
     Dosage: TIME INTERVAL: AS NECESSARY: LEFT DEPRESSOR ANGULI ORIS?2 UNITS TO EACH DAO
     Route: 065
     Dates: start: 20230601, end: 20230601
  3. BOTOX COSMETIC [Suspect]
     Active Substance: ONABOTULINUMTOXINA
     Indication: Skin wrinkling
     Dosage: TIME INTERVAL: AS NECESSARY: LEFT DEPRESSOR ANGULI ORIS
     Route: 065
     Dates: start: 202010, end: 202010
  4. BOTOX COSMETIC [Suspect]
     Active Substance: ONABOTULINUMTOXINA
     Indication: Skin wrinkling
     Dosage: TIME INTERVAL: AS NECESSARY: RIGHT DEPRESSOR ANGULI ORIS
     Route: 065

REACTIONS (3)
  - Hypoaesthesia oral [Unknown]
  - Injection site hypoaesthesia [Unknown]
  - Paraesthesia oral [Unknown]
